FAERS Safety Report 5897179-1 (Version None)
Quarter: 2008Q3

REPORT INFORMATION
  Report Type: 
  Country: None (occurrence: None)
  Receive Date: 20080923
  Receipt Date: 20080725
  Transmission Date: 20090109
  Serious: Yes (Life-Threatening, Hospitalization)
  Sender: FDA-Public Use
  Company Number: 2008AP001819

PATIENT
  Age: 62 Year
  Sex: Male
  Weight: 86.8 kg

DRUGS (11)
  1. SELEGILINE HCL [Suspect]
     Indication: PARKINSON'S DISEASE
     Dosage: 5 MG;BID;PO
     Route: 048
     Dates: start: 20060405, end: 20071028
  2. ASPIRIN [Suspect]
     Indication: ANTICOAGULANT THERAPY
     Dosage: 81 MG;QD;PO
     Route: 048
     Dates: start: 20050501, end: 20071028
  3. INVESTIGATIONAL DRUG [Suspect]
     Indication: PARKINSON'S DISEASE
     Dosage: 12 MG;QD;PO
     Route: 048
     Dates: start: 20071017, end: 20071027
  4. ATENOLOL [Suspect]
     Dosage: 50 MG;QD
     Dates: start: 20010515
  5. AMANTADINE [Concomitant]
  6. SIMVASTATIN [Concomitant]
  7. UBIDECARENONE [Concomitant]
  8. CENTRUM SILVER [Concomitant]
  9. DOCUSATE SODIUM [Concomitant]
  10. GINKGO BILOBA [Concomitant]
  11. SENNA [Concomitant]

REACTIONS (27)
  - BLOOD CREATINE PHOSPHOKINASE INCREASED [None]
  - BLOOD PRESSURE SYSTOLIC INCREASED [None]
  - BLOOD SODIUM DECREASED [None]
  - CEREBRAL AMYLOID ANGIOPATHY [None]
  - CEREBRAL HAEMORRHAGE [None]
  - CONFUSIONAL STATE [None]
  - CONVULSION [None]
  - DEPRESSED LEVEL OF CONSCIOUSNESS [None]
  - FLUID OVERLOAD [None]
  - GENERAL PHYSICAL HEALTH DETERIORATION [None]
  - GLYCOSYLATED HAEMOGLOBIN INCREASED [None]
  - HAEMORRHAGE INTRACRANIAL [None]
  - HEADACHE [None]
  - INSOMNIA [None]
  - LEFT VENTRICULAR HYPERTROPHY [None]
  - LETHARGY [None]
  - MITRAL VALVE DISEASE [None]
  - MITRAL VALVE INCOMPETENCE [None]
  - NAUSEA [None]
  - NUCLEAR MAGNETIC RESONANCE IMAGING BRAIN ABNORMAL [None]
  - PNEUMONIA ASPIRATION [None]
  - PULMONARY VALVE INCOMPETENCE [None]
  - SINUS BRADYCARDIA [None]
  - SOMNOLENCE [None]
  - VERTIGO [None]
  - VOMITING [None]
  - WHITE BLOOD CELL COUNT INCREASED [None]
